FAERS Safety Report 4891628-3 (Version None)
Quarter: 2005Q4

REPORT INFORMATION
  Report Type: 
  Country: None (occurrence: None)
  Receive Date: 20051220
  Receipt Date: 20050921
  Transmission Date: 20060501
  Serious: Yes (Other)
  Sender: FDA-Public Use
  Company Number: 418727

PATIENT
  Age: 64 Year
  Sex: Female

DRUGS (7)
  1. BONIVA [Suspect]
     Indication: OSTEOPOROSIS
     Dosage: 1 PER MONTH ORAL
     Route: 048
     Dates: start: 20050615
  2. MONENSIN [Concomitant]
  3. TAMOXIFEN CITRATE [Concomitant]
  4. DARVOCET (PARACETAMOL/PROPOXYPHENE NAPSYLATE) [Concomitant]
  5. ASCORBIC ACID [Concomitant]
  6. B COMPLEX (VITAMIN B COMPLEX) [Concomitant]
  7. VITAMIN D (VITAMIN D NOS) [Concomitant]

REACTIONS (2)
  - MUSCULOSKELETAL CHEST PAIN [None]
  - ONYCHOCLASIS [None]
